FAERS Safety Report 13617942 (Version 1)
Quarter: 2017Q2

REPORT INFORMATION
  Report Type: Report from Study
  Country: PK (occurrence: PK)
  Receive Date: 20170606
  Receipt Date: 20170606
  Transmission Date: 20170830
  Serious: Yes (Death)
  Sender: FDA-Public Use
  Company Number: PK-INCYTE CORPORATION-2017IN004275

PATIENT

DRUGS (1)
  1. JAKAVI [Suspect]
     Active Substance: RUXOLITINIB
     Indication: PRIMARY MYELOFIBROSIS
     Dosage: 2 DF, BID
     Route: 048
     Dates: start: 20161217

REACTIONS (2)
  - Blood glucose decreased [Fatal]
  - Polycythaemia vera [Fatal]

NARRATIVE: CASE EVENT DATE: 20170425
